FAERS Safety Report 8615119-9 (Version None)
Quarter: 2012Q3

REPORT INFORMATION
  Report Type: 
  Country: None (occurrence: None)
  Receive Date: 20120814
  Receipt Date: 20120814
  Transmission Date: 20120928
  Serious: No
  Sender: FDA-Public Use
  Company Number: None

PATIENT
  Age: 46 Year
  Sex: Male
  Weight: 92.7 kg

DRUGS (1)
  1. GADOBENATE [Suspect]
     Indication: NUCLEAR MAGNETIC RESONANCE IMAGING
     Dosage: 19 ML ONCE IV
     Route: 042
     Dates: start: 20120504, end: 20120504

REACTIONS (6)
  - FLUSHING [None]
  - SYNCOPE [None]
  - DYSPNOEA [None]
  - NAUSEA [None]
  - RASH [None]
  - VOMITING [None]
